FAERS Safety Report 8007334-2 (Version None)
Quarter: 2011Q4

REPORT INFORMATION
  Report Type: 
  Country: None (occurrence: None)
  Receive Date: 20111227
  Receipt Date: 20111215
  Transmission Date: 20120403
  Serious: Yes (Other)
  Sender: FDA-Public Use
  Company Number: DE-UCBSA-039167

PATIENT
  Sex: Female
  Weight: 72 kg

DRUGS (12)
  1. CERTOLIZUMAB PEGOL [Suspect]
     Indication: RHEUMATOID ARTHRITIS
     Dosage: NO. OF DOSES:2
     Route: 058
     Dates: start: 20110511, end: 20110607
  2. PREDNISOLONE [Concomitant]
     Indication: RHEUMATOID ARTHRITIS
     Dates: end: 20110506
  3. PREDNISOLONE [Concomitant]
     Dates: start: 20110607
  4. PREDNISOLONE [Concomitant]
     Dates: start: 20110509, end: 20110606
  5. CERTOLIZUMAB PEGOL [Suspect]
     Dosage: NO. OF DOSES:3
     Route: 058
     Dates: start: 20110413, end: 20110511
  6. CALCIUM CARBONATE [Concomitant]
     Indication: VITAMIN D DEFICIENCY
     Dosage: 400 IE
  7. FRAGMIN PFORTE [Concomitant]
     Indication: CONTUSION
     Dosage: 5000 IE
     Dates: start: 20110506, end: 20110509
  8. PREDNISOLONE [Concomitant]
  9. VOLTAREN [Concomitant]
     Indication: RHEUMATOID ARTHRITIS
     Dosage: PRN (AS NEEDED)
  10. OLMESARTAN MEDOXOMIL [Concomitant]
     Indication: HYPERTENSION
  11. CALCIUM CARBONATE [Concomitant]
     Indication: OSTEOPOROSIS
     Dosage: 400 IE
  12. TETATUNS VACC [Concomitant]
     Dosage: UNKNOWN DOSE
     Dates: start: 20110506

REACTIONS (2)
  - ERYTHEMA NODOSUM [None]
  - RASH [None]
